FAERS Safety Report 9746280 (Version 1)
Quarter: 2013Q4

REPORT INFORMATION
  Report Type: Spontaneous
  Country: US (occurrence: None)
  Receive Date: 20131209
  Receipt Date: 20131209
  Transmission Date: 20140711
  Serious: Yes (Hospitalization)
  Sender: FDA-Public Use
  Company Number: None

PATIENT
  Age: 70 Year
  Sex: Male
  Weight: 104.33 kg

DRUGS (7)
  1. ZOLPIDEM TARTRATE [Suspect]
     Indication: INITIAL INSOMNIA
     Dosage: 1 TABLET DAILY AT BEDTIME
     Route: 048
     Dates: start: 20031201, end: 20131204
  2. ZOLPIDEM TARTRATE [Suspect]
     Indication: MIDDLE INSOMNIA
     Dosage: 1 TABLET DAILY AT BEDTIME
     Route: 048
     Dates: start: 20031201, end: 20131204
  3. MENTANX [Concomitant]
  4. AMBIEN [Concomitant]
  5. ASPIRIN [Concomitant]
  6. VITAMIN [Concomitant]
  7. ALEVE [Concomitant]

REACTIONS (5)
  - Wrong technique in drug usage process [None]
  - Sleep talking [None]
  - Hallucination [None]
  - Abnormal sleep-related event [None]
  - Amnesia [None]
